FAERS Safety Report 18566346 (Version 1)
Quarter: 2020Q4

REPORT INFORMATION
  Report Type: Spontaneous
  Country: US (occurrence: US)
  Receive Date: 20201201
  Receipt Date: 20201201
  Transmission Date: 20210114
  Serious: Yes (Death)
  Sender: FDA-Public Use
  Company Number: US-PFIZER INC-2020469762

PATIENT
  Age: 39 Year
  Sex: Female

DRUGS (8)
  1. GENTAMICIN. [Concomitant]
     Active Substance: GENTAMICIN
     Dosage: UNK
     Route: 051
  2. OXACILLIN [Concomitant]
     Active Substance: OXACILLIN SODIUM
     Dosage: 8 G, DAILY
     Route: 042
  3. AMPHOTERICIN B. [Concomitant]
     Active Substance: AMPHOTERICIN B
     Dosage: 50 MG, DAILY
  4. TOBRAMYCIN. [Suspect]
     Active Substance: TOBRAMYCIN
     Indication: MENINGITIS
     Dosage: 10 MG, DAILY
     Route: 037
  5. TOBRAMYCIN. [Suspect]
     Active Substance: TOBRAMYCIN
     Dosage: 100 MG, 3X/DAY (EVERY 8 H)
     Route: 042
  6. GENTAMICIN. [Concomitant]
     Active Substance: GENTAMICIN
     Dosage: 100 MG, 3X/DAY (100 MG EVERY 8 H)
     Route: 042
  7. AMPICILLIN [Concomitant]
     Active Substance: AMPICILLIN
     Dosage: UNK
     Route: 051
  8. CARBENICILLIN [Suspect]
     Active Substance: CARBENICILLIN
     Indication: MENINGITIS
     Dosage: 3 G, CYCLIC (EVERY 4 H )
     Route: 042

REACTIONS (3)
  - Product use issue [Unknown]
  - Off label use [Unknown]
  - Drug ineffective [Fatal]
